FAERS Safety Report 12202114 (Version 4)
Quarter: 2016Q2

REPORT INFORMATION
  Report Type: Report from Study
  Country: US (occurrence: US)
  Receive Date: 20160322
  Receipt Date: 20160505
  Transmission Date: 20160815
  Serious: No
  Sender: FDA-Public Use
  Company Number: US-AMGEN-USASL2016034196

PATIENT
  Age: 54 Year
  Sex: Female

DRUGS (3)
  1. PREDNISONE. [Suspect]
     Active Substance: PREDNISONE
     Indication: PRODUCT USED FOR UNKNOWN INDICATION
     Dosage: 40 MG, UNK
     Route: 065
  2. PREDNISONE. [Suspect]
     Active Substance: PREDNISONE
     Dosage: 20 MG, UNK
     Route: 065
  3. ENBREL [Suspect]
     Active Substance: ETANERCEPT
     Indication: RHEUMATOID ARTHRITIS
     Dosage: 50 MG, QWK
     Route: 065
     Dates: start: 20160309

REACTIONS (8)
  - Headache [Unknown]
  - Throat irritation [Unknown]
  - Generalised oedema [Unknown]
  - Sinusitis [Unknown]
  - Oropharyngeal pain [Recovering/Resolving]
  - Influenza like illness [Unknown]
  - Peripheral swelling [Unknown]
  - Eye irritation [Unknown]

NARRATIVE: CASE EVENT DATE: 2016
